FAERS Safety Report 18612163 (Version 3)
Quarter: 2021Q2

REPORT INFORMATION
  Report Type: Report from Study
  Country: US (occurrence: US)
  Receive Date: 20201214
  Receipt Date: 20210427
  Transmission Date: 20210717
  Serious: Yes (Other)
  Sender: FDA-Public Use
  Company Number: US-JAZZ-2020-US-016772

PATIENT
  Sex: Female

DRUGS (3)
  1. XYREM [Suspect]
     Active Substance: SODIUM OXYBATE
     Dosage: 3 GRAM, BID
     Route: 048
     Dates: start: 202008
  2. XYREM [Suspect]
     Active Substance: SODIUM OXYBATE
     Indication: NARCOLEPSY
     Dosage: 2.25 GRAM, BID
     Route: 048
     Dates: start: 202007, end: 202007
  3. XYREM [Suspect]
     Active Substance: SODIUM OXYBATE
     Indication: CATAPLEXY
     Dosage: DOSE ADJUSTMENT
     Route: 048
     Dates: start: 202007, end: 202008

REACTIONS (3)
  - Dizziness [Recovered/Resolved]
  - Seizure [Recovering/Resolving]
  - Irritability [Not Recovered/Not Resolved]
